FAERS Safety Report 11342799 (Version 1)
Quarter: 2015Q3

REPORT INFORMATION
  Report Type: Spontaneous
  Country: CH (occurrence: CH)
  Receive Date: 20150805
  Receipt Date: 20150805
  Transmission Date: 20151125
  Serious: Yes (Other)
  Sender: FDA-Public Use
  Company Number: CH-ABBVIE-15P-151-1437813-00

PATIENT
  Age: 51 Year
  Sex: Female

DRUGS (4)
  1. TRUVADA [Suspect]
     Active Substance: EMTRICITABINE\TENOFOVIR DISOPROXIL FUMARATE
     Indication: HIV INFECTION CDC CATEGORY C
     Dosage: 200/300MG; IN THE MORNING
     Route: 048
     Dates: start: 201104
  2. WELLVONE [Concomitant]
     Active Substance: ATOVAQUONE
     Indication: PRODUCT USED FOR UNKNOWN INDICATION
     Dosage: 1 IN THE MORNING, 1 IN THE EVENING
     Route: 048
  3. PREZISTA [Suspect]
     Active Substance: DARUNAVIR ETHANOLATE
     Indication: HIV INFECTION CDC CATEGORY C
     Dosage: 2 IN THE MORNING
     Route: 048
     Dates: start: 201104
  4. NORVIR [Suspect]
     Active Substance: RITONAVIR
     Indication: HIV INFECTION CDC CATEGORY C
     Dosage: IN THE MORNING
     Route: 048
     Dates: start: 201104

REACTIONS (9)
  - Glomerulonephritis [Unknown]
  - Kidney fibrosis [Unknown]
  - Chronic kidney disease [Unknown]
  - Renal tubular disorder [Unknown]
  - Arteriosclerosis [Unknown]
  - Haematuria [Unknown]
  - Proteinuria [Unknown]
  - Microalbuminuria [Unknown]
  - Renal tubular atrophy [Unknown]

NARRATIVE: CASE EVENT DATE: 2015
